FAERS Safety Report 7555100-4 (Version None)
Quarter: 2011Q2

REPORT INFORMATION
  Report Type: 
  Country: None (occurrence: None)
  Receive Date: 20110617
  Receipt Date: 20110616
  Transmission Date: 20111010
  Serious: Yes (Hospitalization)
  Sender: FDA-Public Use
  Company Number: FR-BRISTOL-MYERS SQUIBB COMPANY-15015332

PATIENT
  Age: 57 Year
  Sex: Female

DRUGS (7)
  1. FLUOROURACIL [Suspect]
     Indication: ANAL CANCER
     Route: 042
     Dates: start: 20090727, end: 20090828
  2. OXYCODONE HCL [Concomitant]
     Indication: PAIN
     Route: 048
  3. CETUXIMAB [Suspect]
     Indication: ANAL CANCER
     Route: 042
     Dates: start: 20090713, end: 20090824
  4. CISPLATIN [Suspect]
     Indication: ANAL CANCER
     Route: 042
     Dates: start: 20090727, end: 20090824
  5. ACETAMINOPHEN [Concomitant]
     Indication: PAIN
     Route: 048
  6. OXYCONTIN [Concomitant]
     Indication: PAIN
     Route: 048
  7. LYRICA [Concomitant]
     Indication: PAIN
     Route: 048

REACTIONS (1)
  - RADIATION NECROSIS [None]
